FAERS Safety Report 7730645-2 (Version None)
Quarter: 2011Q3

REPORT INFORMATION
  Report Type: 
  Country: None (occurrence: None)
  Receive Date: 20110906
  Receipt Date: 20110829
  Transmission Date: 20111222
  Serious: Yes (Life-Threatening, Hospitalization)
  Sender: FDA-Public Use
  Company Number: JP-CELGENEUS-087-21880-11080992

PATIENT
  Sex: Male

DRUGS (16)
  1. DECADRON [Concomitant]
     Route: 065
  2. ALINAMIN-F [Concomitant]
     Dosage: 75 MILLIGRAM
     Route: 048
     Dates: start: 20100804
  3. GABAPENTIN [Concomitant]
     Dosage: 600 MILLIGRAM
     Route: 048
     Dates: start: 20100608
  4. SULFAMETHOXAZOLE [Concomitant]
     Indication: INFECTION PROPHYLAXIS
     Dosage: 1 GRAM
     Route: 048
     Dates: start: 20090123
  5. DEXAMETHASONE [Suspect]
     Indication: MULTIPLE MYELOMA
     Dosage: 4 MILLIGRAM
     Route: 048
     Dates: start: 20110720, end: 20110727
  6. ACYCLOVIR [Concomitant]
     Indication: INFECTION PROPHYLAXIS
     Dosage: 200 MILLIGRAM
     Route: 048
     Dates: start: 20100523
  7. CEFAZOLIN SODIUM [Concomitant]
     Dosage: 18 MILLIGRAM
     Route: 048
     Dates: start: 20100806
  8. METHYCOBAL [Concomitant]
     Dosage: 1500 MICROGRAM
     Route: 048
     Dates: start: 20110616
  9. FIRSTCIN [Concomitant]
     Indication: PYREXIA
     Route: 065
     Dates: start: 20110801
  10. ITRACONAZOLE [Concomitant]
     Indication: INFECTION PROPHYLAXIS
     Dosage: 100 MILLIGRAM
     Route: 048
     Dates: start: 20090123
  11. FOLIC ACID [Concomitant]
     Dosage: 15 MILLIGRAM
     Route: 048
     Dates: start: 20110811
  12. ASPIRIN [Concomitant]
     Dosage: 100 MILLIGRAM
     Route: 048
     Dates: start: 20110720, end: 20110805
  13. CLONAZEPAM [Concomitant]
     Dosage: .5 MILLIGRAM
     Route: 048
     Dates: start: 20100719
  14. LANSOPRAZOLE [Concomitant]
     Indication: PROPHYLAXIS AGAINST GASTROINTESTINAL ULCER
     Dosage: 15 MILLIGRAM
     Route: 048
     Dates: start: 20090115
  15. REVLIMID [Suspect]
     Indication: MULTIPLE MYELOMA
     Dosage: 5 MILLIGRAM
     Route: 048
     Dates: start: 20110720, end: 20110802
  16. LYRICA [Concomitant]
     Dosage: 100 MILLIGRAM
     Route: 048
     Dates: start: 20101208

REACTIONS (1)
  - PNEUMONIA [None]
